FAERS Safety Report 7357090-6 (Version None)
Quarter: 2011Q1

REPORT INFORMATION
  Report Type: 
  Country: None (occurrence: None)
  Receive Date: 20110317
  Receipt Date: 20110121
  Transmission Date: 20110831
  Serious: Yes (Hospitalization)
  Sender: FDA-Public Use
  Company Number: US-BAYER-2011-023422

PATIENT
  Sex: Female
  Weight: 56.236 kg

DRUGS (8)
  1. YASMIN [Suspect]
     Indication: MENORRHAGIA
  2. GARLIC [Concomitant]
  3. YASMIN [Suspect]
     Indication: CONTRACEPTION
     Dosage: UNK, QD
     Dates: start: 20000101, end: 20060101
  4. YASMIN [Suspect]
     Indication: MENSTRUAL DISORDER
  5. YASMIN [Suspect]
     Indication: PREMENSTRUAL SYNDROME
  6. ADVIL LIQUI-GELS [Concomitant]
  7. EXCEDRIN ASPIRIN FREE [Concomitant]
  8. ALLERGY MEDICATION [Concomitant]

REACTIONS (4)
  - PLEURISY [None]
  - PULMONARY EMBOLISM [None]
  - FATIGUE [None]
  - DYSPNOEA [None]
